FAERS Safety Report 10021139 (Version 1)
Quarter: 2014Q1

REPORT INFORMATION
  Report Type: Spontaneous
  Country: US (occurrence: None)
  Receive Date: 20140318
  Receipt Date: 20140318
  Transmission Date: 20141002
  Serious: Yes (Life-Threatening)
  Sender: FDA-Public Use
  Company Number: None

PATIENT
  Age: 67 Year
  Sex: Male
  Weight: 99.79 kg

DRUGS (5)
  1. XOPENEX HFA [Suspect]
     Indication: ASTHMA
     Dosage: 2 PUFFS PRIOR TO EXERCISE
     Dates: start: 20140313
  2. PREVACID [Concomitant]
  3. MUCINEX [Concomitant]
  4. LUNESTA [Concomitant]
  5. BABY ASPIRIN [Concomitant]

REACTIONS (3)
  - Heart rate decreased [None]
  - Blood pressure decreased [None]
  - Syncope [None]
